FAERS Safety Report 8969105 (Version 2)
Quarter: 2013Q1

REPORT INFORMATION
  Report Type: Spontaneous
  Country: FR (occurrence: None)
  Receive Date: 20121210
  Receipt Date: 20121226
  Transmission Date: 20140127
  Serious: Yes (Hospitalization, Other)
  Sender: FDA-Public Use
  Company Number: 2012FR0429

PATIENT
  Age: 27 Year
  Sex: Male
  Weight: 85 kg

DRUGS (1)
  1. KINERET [Suspect]
     Indication: JUVENILE IDIOPATHIC ARTHRITIS

REACTIONS (2)
  - Cholesteatoma [None]
  - Impaired healing [None]
